FAERS Safety Report 8068351-X (Version None)
Quarter: 2012Q1

REPORT INFORMATION
  Report Type: 
  Country: None (occurrence: None)
  Receive Date: 20120124
  Receipt Date: 20111012
  Transmission Date: 20120608
  Serious: No
  Sender: FDA-Public Use
  Company Number: US-AMGEN-USASP2011052851

PATIENT
  Age: 76 Year
  Sex: Female

DRUGS (9)
  1. LEVOXYL [Concomitant]
     Dosage: 1 MUG, QD
  2. PROLIA [Suspect]
     Indication: OSTEOPOROSIS POSTMENOPAUSAL
     Dosage: 60 MG, Q6MO
     Dates: start: 20110501
  3. BISOPROLOL FUMARATE AND HYDROCHLOROTHIAZIDE [Concomitant]
     Dosage: 2 MG, QD
  4. MULTIVITAMIN                       /00097801/ [Concomitant]
     Dosage: UNK UNK, QD
  5. CALCIUM PLUS VITAMIN D [Concomitant]
     Dosage: 3 MG, QD
  6. LOSARTAN POTASSIUM [Concomitant]
     Dosage: 1 MG, QD
  7. TRAMADOL HCL [Concomitant]
     Dosage: 1 MG, QD
  8. POTASSIUM CHLORIDE [Concomitant]
  9. EVISTA [Concomitant]
     Dosage: 1 MG, QD

REACTIONS (1)
  - LACERATION [None]
